FAERS Safety Report 8198805-7 (Version None)
Quarter: 2012Q1

REPORT INFORMATION
  Report Type: 
  Country: None (occurrence: None)
  Receive Date: 20120309
  Receipt Date: 20120216
  Transmission Date: 20120608
  Serious: No
  Sender: FDA-Public Use
  Company Number: US-AMGEN-USASP2012005203

PATIENT
  Age: 81 Year
  Sex: Female
  Weight: 50 kg

DRUGS (6)
  1. VITAMIN D [Concomitant]
     Dosage: 1 IU, QD
     Dates: start: 20071211
  2. COLCHICINE [Concomitant]
     Dosage: 0.6 MG, QD
     Route: 048
     Dates: start: 20101026
  3. OPTIVE [Concomitant]
     Dosage: UNK
     Dates: start: 20100506
  4. TETRACYCLINE [Concomitant]
     Indication: GINGIVAL DISORDER
     Dosage: UNK UNK, QD
  5. M.V.I. [Concomitant]
     Dosage: UNK UNK, QD
     Route: 048
     Dates: start: 20101026
  6. PROLIA [Suspect]
     Indication: OSTEOPOROSIS POSTMENOPAUSAL
     Dosage: 60 MG, Q6MO
     Route: 058
     Dates: start: 20120109

REACTIONS (4)
  - TOOTH INFECTION [None]
  - GINGIVAL INFECTION [None]
  - PAIN IN JAW [None]
  - TOOTH ABSCESS [None]
